FAERS Safety Report 8104521-X (Version None)
Quarter: 2012Q1

REPORT INFORMATION
  Report Type: 
  Country: None (occurrence: None)
  Receive Date: 20120201
  Receipt Date: 20120124
  Transmission Date: 20120608
  Serious: Yes (Hospitalization)
  Sender: FDA-Public Use
  Company Number: US-CELGENEUS-163-21880-12012478

PATIENT
  Sex: Male

DRUGS (2)
  1. REVLIMID [Suspect]
     Indication: LYMPHOMA
     Dosage: 20 MILLIGRAM
     Route: 048
     Dates: start: 20111222
  2. RITUXAN [Suspect]
     Indication: NON-HODGKIN'S LYMPHOMA
     Dosage: 375 MILLIGRAM/SQ. METER
     Route: 065
     Dates: start: 20111222

REACTIONS (3)
  - DIZZINESS [None]
  - MEMORY IMPAIRMENT [None]
  - CONFUSIONAL STATE [None]
